FAERS Safety Report 20209074 (Version 2)
Quarter: 2021Q4

REPORT INFORMATION
  Report Type: Report from Study
  Country: FR (occurrence: FR)
  Receive Date: 20211220
  Receipt Date: 20211224
  Transmission Date: 20220303
  Serious: Yes (Death, Life-Threatening)
  Sender: FDA-Public Use
  Company Number: FR-SERVIER-S21014059

PATIENT

DRUGS (3)
  1. PLACEBO [Suspect]
     Active Substance: UNSPECIFIED INGREDIENT
     Indication: Acute myeloid leukaemia
     Dates: start: 20211203
  2. TN UNSPECIFIED [Concomitant]
     Indication: Acute myeloid leukaemia
     Dosage: 370 MG, UNKNOWN
     Route: 065
     Dates: start: 20211203, end: 20211209
  3. TN UNSPECIFIED [Concomitant]
     Indication: Acute myeloid leukaemia
     Dosage: 110 MG, UNKNOWN
     Route: 065
     Dates: start: 20211203, end: 20211205

REACTIONS (2)
  - Septic shock [Not Recovered/Not Resolved]
  - Cerebral haemorrhage [Fatal]

NARRATIVE: CASE EVENT DATE: 20211213
